FAERS Safety Report 18136123 (Version 15)
Quarter: 2025Q2

REPORT INFORMATION
  Report Type: Spontaneous
  Country: US (occurrence: US)
  Receive Date: 20200811
  Receipt Date: 20250604
  Transmission Date: 20250716
  Serious: No
  Sender: BIOGEN
  Company Number: US-BIOGEN-2020BI00909718

PATIENT
  Age: 53 Year
  Sex: Female

DRUGS (4)
  1. TYSABRI [Suspect]
     Active Substance: NATALIZUMAB
     Indication: Multiple sclerosis
     Route: 050
     Dates: start: 20200625
  2. TYSABRI [Suspect]
     Active Substance: NATALIZUMAB
     Route: 050
     Dates: end: 20210222
  3. TYSABRI [Suspect]
     Active Substance: NATALIZUMAB
     Route: 050
     Dates: start: 20230818, end: 20231016
  4. TYSABRI [Suspect]
     Active Substance: NATALIZUMAB
     Route: 050
     Dates: start: 20241125, end: 20241230

REACTIONS (16)
  - Product dose omission issue [Unknown]
  - Prescribed underdose [Recovered/Resolved]
  - Abdominal pain upper [Not Recovered/Not Resolved]
  - Loss of consciousness [Not Recovered/Not Resolved]
  - Agitation [Not Recovered/Not Resolved]
  - Stress [Not Recovered/Not Resolved]
  - Anger [Not Recovered/Not Resolved]
  - Frustration tolerance decreased [Not Recovered/Not Resolved]
  - Uterine polyp [Unknown]
  - Paraesthesia [Unknown]
  - Hypoaesthesia [Unknown]
  - Sinusitis [Recovered/Resolved]
  - Influenza like illness [Recovered/Resolved]
  - Tooth infection [Unknown]
  - Fatigue [Unknown]
  - Nausea [Recovered/Resolved]

NARRATIVE: CASE EVENT DATE: 20200715
